FAERS Safety Report 20065138 (Version 2)
Quarter: 2021Q4

REPORT INFORMATION
  Report Type: Spontaneous
  Country: GB (occurrence: GB)
  Receive Date: 20211113
  Receipt Date: 20211209
  Transmission Date: 20220303
  Serious: Yes (Hospitalization)
  Sender: FDA-Public Use
  Company Number: GB-ABBVIE-21K-167-4155495-00

PATIENT
  Age: 49 Year
  Sex: Male
  Weight: 142 kg

DRUGS (1)
  1. SKYRIZI [Suspect]
     Active Substance: RISANKIZUMAB-RZAA
     Indication: Product used for unknown indication
     Route: 058
     Dates: start: 202102, end: 202111

REACTIONS (6)
  - Hepatic cirrhosis [Unknown]
  - Alcohol abuse [Unknown]
  - Oedema [Unknown]
  - Ascites [Unknown]
  - Liver function test abnormal [Unknown]
  - Asthenia [Unknown]

NARRATIVE: CASE EVENT DATE: 20210101
